FAERS Safety Report 9807973 (Version 6)
Quarter: 2014Q3

REPORT INFORMATION
  Report Type: Spontaneous
  Country: US (occurrence: US)
  Receive Date: 20140110
  Receipt Date: 20140710
  Transmission Date: 20150326
  Serious: Yes (Disabling, Other)
  Sender: FDA-Public Use
  Company Number: US-009507513-1103USA03603

PATIENT
  Sex: Male
  Weight: 81.65 kg

DRUGS (5)
  1. PROSCAR [Suspect]
     Active Substance: FINASTERIDE
     Indication: ANDROGENETIC ALOPECIA
     Dosage: 1.25 MG, QD
     Route: 048
     Dates: start: 1999
  2. PROSCAR [Suspect]
     Active Substance: FINASTERIDE
     Dosage: 5 MG, UNK
     Route: 048
     Dates: start: 20010727, end: 20031027
  3. PROPECIA [Suspect]
     Active Substance: FINASTERIDE
     Indication: ALOPECIA
     Route: 048
     Dates: start: 1999
  4. PROSCAR [Suspect]
     Active Substance: FINASTERIDE
     Dosage: 1.25 MG, QD
     Route: 048
     Dates: start: 2008, end: 2008
  5. NIZORAL [Concomitant]
     Active Substance: KETOCONAZOLE
     Indication: SEBORRHOEIC DERMATITIS
     Dosage: UNK %, UNK
     Route: 061
     Dates: start: 1994, end: 2009

REACTIONS (60)
  - Prostatitis [Not Recovered/Not Resolved]
  - Enzyme abnormality [Unknown]
  - Penile pain [Unknown]
  - Systemic candida [Unknown]
  - Diverticulum [Unknown]
  - Paraesthesia [Unknown]
  - Otitis media [Recovering/Resolving]
  - Dyspnoea exertional [Unknown]
  - Penis disorder [Unknown]
  - Penis disorder [Unknown]
  - Peripheral sensory neuropathy [Unknown]
  - Infection parasitic [Unknown]
  - Gastrointestinal disorder [Unknown]
  - Viral infection [Unknown]
  - Dysuria [Unknown]
  - Lethargy [Unknown]
  - Semen volume decreased [Unknown]
  - Irritable bowel syndrome [Recovered/Resolved]
  - Spermatozoa progressive motility decreased [Unknown]
  - Sleep apnoea syndrome [Unknown]
  - Aphasia [Not Recovered/Not Resolved]
  - Panic attack [Not Recovered/Not Resolved]
  - Blood testosterone decreased [Not Recovered/Not Resolved]
  - Upper respiratory tract infection [Unknown]
  - Eczema [Unknown]
  - Herpes virus infection [Unknown]
  - Insomnia [Not Recovered/Not Resolved]
  - Tooth disorder [Unknown]
  - Bruxism [Unknown]
  - Tooth disorder [Unknown]
  - Arterial occlusive disease [Recovering/Resolving]
  - Hormone level abnormal [Not Recovered/Not Resolved]
  - Intentional product misuse [Unknown]
  - Asthenia [Unknown]
  - Androgen deficiency [Unknown]
  - Cerumen impaction [Recovering/Resolving]
  - Nocturia [Unknown]
  - Rash [Recovering/Resolving]
  - Penile vascular reconstructive surgery [Unknown]
  - Sexual dysfunction [Not Recovered/Not Resolved]
  - Wrong technique in drug usage process [Unknown]
  - Dental discomfort [Unknown]
  - Perineal pain [Not Recovered/Not Resolved]
  - Weight decreased [Unknown]
  - Libido decreased [Not Recovered/Not Resolved]
  - Anxiety [Not Recovered/Not Resolved]
  - Fatigue [Not Recovered/Not Resolved]
  - Urinary incontinence [Unknown]
  - Coeliac disease [Unknown]
  - Melanocytic naevus [Unknown]
  - Penis disorder [Unknown]
  - Norepinephrine increased [Unknown]
  - Face injury [Unknown]
  - Headache [Not Recovered/Not Resolved]
  - Dihydrotestosterone decreased [Not Recovered/Not Resolved]
  - Hypothyroidism [Not Recovered/Not Resolved]
  - Nasal congestion [Unknown]
  - Disturbance in attention [Unknown]
  - Back pain [Unknown]
  - Pneumonia klebsiella [Unknown]

NARRATIVE: CASE EVENT DATE: 1999
